FAERS Safety Report 9332043 (Version 1)
Quarter: 2013Q2

REPORT INFORMATION
  Report Type: Spontaneous
  Country: US (occurrence: US)
  Receive Date: 20130605
  Receipt Date: 20130605
  Transmission Date: 20140414
  Serious: Yes (Hospitalization)
  Sender: FDA-Public Use
  Company Number: US-B.I. PHARMACEUTICALS,INC./RIDGEFIELD-2013-BI-15656BP

PATIENT
  Age: 68 Year
  Sex: Female
  Weight: 91 kg

DRUGS (13)
  1. SPIRIVA [Suspect]
     Indication: CHRONIC OBSTRUCTIVE PULMONARY DISEASE
     Dosage: 18 MCG
     Route: 055
     Dates: start: 2012, end: 2012
  2. SPIRIVA [Suspect]
     Dosage: 18 MCG
     Route: 055
     Dates: start: 20130522
  3. HUMULIN 70/30 [Concomitant]
     Indication: DIABETES MELLITUS
     Dosage: 90 U
     Route: 058
  4. HUMULIN 70/30 [Concomitant]
     Dosage: 90 U
     Route: 058
  5. PRAVASTATIN [Concomitant]
     Indication: BLOOD CHOLESTEROL INCREASED
     Dosage: 40 MG
     Route: 048
  6. ASPIRIN [Concomitant]
     Indication: CEREBROVASCULAR ACCIDENT
     Dosage: 81 MG
     Route: 048
  7. LABETALOL [Concomitant]
     Indication: HYPERTENSION
     Dosage: 400 MG
     Route: 048
  8. LASIX [Concomitant]
     Indication: FLUID RETENTION
     Dosage: 20 MG
     Route: 048
  9. DIPYRIDAMOLE [Concomitant]
     Indication: CEREBROVASCULAR ACCIDENT
     Route: 048
  10. POTASSIUM [Concomitant]
     Dosage: 20 MEQ
     Route: 048
  11. ZOLOFT [Concomitant]
     Indication: DEPRESSION
     Dosage: 50 MG
     Route: 048
  12. DUO NEBULIZER [Concomitant]
     Indication: CHRONIC OBSTRUCTIVE PULMONARY DISEASE
     Route: 055
  13. SINGULAIR [Concomitant]
     Dosage: 10 MG
     Route: 048

REACTIONS (10)
  - Loss of consciousness [Recovered/Resolved]
  - Choking [Recovered/Resolved]
  - Ovarian cyst [Not Recovered/Not Resolved]
  - Nephrolithiasis [Not Recovered/Not Resolved]
  - Gastric ulcer [Not Recovered/Not Resolved]
  - Cough [Not Recovered/Not Resolved]
  - Joint swelling [Recovered/Resolved]
  - Oedema peripheral [Not Recovered/Not Resolved]
  - Pain [Recovered/Resolved]
  - Dyspnoea exertional [Recovered/Resolved]
